FAERS Safety Report 4874814-8 (Version None)
Quarter: 2006Q1

REPORT INFORMATION
  Report Type: 
  Country: None (occurrence: None)
  Receive Date: 20060103
  Receipt Date: 20060103
  Transmission Date: 20060701
  Serious: Yes (Hospitalization)
  Sender: FDA-Public Use
  Company Number: None

PATIENT
  Sex: Female
  Weight: 50 kg

DRUGS (4)
  1. CISPLATIN [Suspect]
     Indication: SMALL CELL LUNG CANCER STAGE UNSPECIFIED
     Dosage: SEE IMAGE
     Route: 042
     Dates: start: 20051220
  2. ETOPOSIDE [Suspect]
     Dosage: SEE IMAGE
     Route: 048
     Dates: start: 20051220, end: 20051222
  3. RADIATION THERAPY [Suspect]
     Dosage: SEE IMAGE
  4. NEUPOGEN [Suspect]
     Dosage: SEE IMAGE

REACTIONS (5)
  - ASTHENIA [None]
  - DEHYDRATION [None]
  - FAILURE TO THRIVE [None]
  - NEUTROPENIA [None]
  - OESOPHAGITIS [None]
